FAERS Safety Report 8875668 (Version 1)
Quarter: 2012Q4

REPORT INFORMATION
  Report Type: 
  Country: SE (occurrence: SE)
  Receive Date: 20121030
  Receipt Date: 20121030
  Transmission Date: 20130627
  Serious: Yes (Hospitalization)
  Sender: FDA-Public Use
  Company Number: SE-B.I. PHARMACEUTICALS,INC./RIDGEFIELD-2012-SW-00807SW

PATIENT
  Age: 66 Year
  Sex: Male

DRUGS (11)
  1. SIFROL TAB [Suspect]
     Indication: PARKINSONISM
  2. ATACAND [Suspect]
  3. CIALIS [Concomitant]
  4. ALFUZOSIN [Concomitant]
  5. ZOLPIDEM [Concomitant]
  6. PANODIL [Concomitant]
     Dosage: Formulation; film coated tablet. Strength: 500 mg
  7. INDERAL RETARD [Concomitant]
     Dosage: Formulation; prolonged-release capsule, hard Strength; 160 mg
  8. MADOPARK [Concomitant]
     Dosage: strength; 100mg/25mg
  9. AMLODIPIN [Concomitant]
     Dosage: Strength; 5 mg
  10. DIMOR [Concomitant]
     Dosage: Formulation: film coated tablet Strength: 2 mg
  11. ALLOPURINOL [Concomitant]

REACTIONS (3)
  - Hallucination [Recovered/Resolved]
  - Hyperkalaemia [Recovered/Resolved]
  - Renal failure acute [Recovered/Resolved]
